FAERS Safety Report 6848591-5 (Version None)
Quarter: 2010Q3

REPORT INFORMATION
  Report Type: 
  Country: None (occurrence: None)
  Receive Date: 20100716
  Receipt Date: 20100706
  Transmission Date: 20110219
  Serious: Yes (Death, Other)
  Sender: FDA-Public Use
  Company Number: TR-BRISTOL-MYERS SQUIBB COMPANY-15180615

PATIENT
  Age: 36 Year
  Sex: Female

DRUGS (5)
  1. DIDANOSINE [Suspect]
     Indication: ANTIRETROVIRAL THERAPY
  2. STAVUDINE [Suspect]
     Indication: ANTIRETROVIRAL THERAPY
  3. ZIDOVUDINE [Suspect]
     Indication: ANTIRETROVIRAL THERAPY
  4. NELFINAVIR [Suspect]
     Indication: ANTIRETROVIRAL THERAPY
  5. GANCICLOVIR [Concomitant]

REACTIONS (5)
  - IMMUNE RECONSTITUTION SYNDROME [None]
  - LUNG DISORDER [None]
  - RETINAL DETACHMENT [None]
  - UVEITIS [None]
  - VISUAL ACUITY REDUCED [None]
